FAERS Safety Report 5701973-7 (Version None)
Quarter: 2008Q2

REPORT INFORMATION
  Report Type: 
  Country: None (occurrence: None)
  Receive Date: 20080408
  Receipt Date: 20080327
  Transmission Date: 20081010
  Serious: Yes (Disabling)
  Sender: FDA-Public Use
  Company Number: GXKR2008ID03066

PATIENT
  Sex: 0

DRUGS (1)
  1. RIMSTAR(ETHAMBUTOL DIHYDROCHLORIDE, PYRAZINAMIDE, ISONIAZID, RIFAMPICI [Suspect]

REACTIONS (1)
  - RENAL FAILURE ACUTE [None]
